FAERS Safety Report 11886707 (Version 2)
Quarter: 2016Q1

REPORT INFORMATION
  Report Type: Spontaneous
  Country: US (occurrence: US)
  Receive Date: 20160104
  Receipt Date: 20160204
  Transmission Date: 20160526
  Serious: No
  Sender: FDA-Public Use
  Company Number: US-PFIZER INC-2015478467

PATIENT
  Age: 49 Year
  Sex: Female
  Weight: 86 kg

DRUGS (2)
  1. LYRICA [Suspect]
     Active Substance: PREGABALIN
     Indication: TRIGEMINAL NEURALGIA
     Dosage: 300 MG, 2X/DAY (IN THE AM AND AT NIGHT)
     Dates: start: 2014
  2. LYRICA [Suspect]
     Active Substance: PREGABALIN
     Dosage: 400 MG, DAILY (250 MG IN THE MORNING AND 150 MG AT NIGHT)
     Dates: start: 2015

REACTIONS (8)
  - Memory impairment [Unknown]
  - Weight increased [Not Recovered/Not Resolved]
  - Confusional state [Recovering/Resolving]
  - Impaired work ability [Recovering/Resolving]
  - Cognitive disorder [Not Recovered/Not Resolved]
  - Condition aggravated [Not Recovered/Not Resolved]
  - Drug effect incomplete [Unknown]
  - Vision blurred [Not Recovered/Not Resolved]
